FAERS Safety Report 7833305 (Version 3)
Quarter: 2012Q4

REPORT INFORMATION
  Report Type: Spontaneous
  Country: US (occurrence: None)
  Receive Date: 20110204
  Receipt Date: 20120831
  Transmission Date: 20130627
  Serious: Yes (Life-Threatening, Hospitalization, Other)
  Sender: FDA-Public Use
  Company Number: ALK_01555_2011

PATIENT
  Age: 55 Year
  Sex: Male
  Weight: 99.8 kg

DRUGS (3)
  1. VIVITROL [Suspect]
     Indication: OPIOID TYPE DEPENDENCE
     Dosage: (INTRAMUSCULAR)
     Route: 030
     Dates: start: 20110106, end: 20110106
  2. VIVITROL [Suspect]
     Indication: OPIOID TYPE DEPENDENCE
     Dosage: (INTRAMUSCULAR)
     Route: 030
     Dates: start: 20110106, end: 20110106
  3. KLONOPIN [Concomitant]

REACTIONS (5)
  - Nausea [None]
  - Vomiting [None]
  - Coma [None]
  - Sensory loss [None]
  - Gait disturbance [None]
